FAERS Safety Report 24831990 (Version 1)
Quarter: 2025Q1

REPORT INFORMATION
  Report Type: Spontaneous
  Country: CH (occurrence: CH)
  Receive Date: 20250110
  Receipt Date: 20250110
  Transmission Date: 20250409
  Serious: Yes (Hospitalization)
  Sender: SANDOZ
  Company Number: CH-SANDOZ-SDZ2024CH106091

PATIENT
  Age: 50 Year
  Sex: Male
  Weight: 80 kg

DRUGS (23)
  1. ARIPIPRAZOLE [Suspect]
     Active Substance: ARIPIPRAZOLE
     Indication: Product used for unknown indication
     Route: 065
  2. ESCITALOPRAM [Suspect]
     Active Substance: ESCITALOPRAM OXALATE
     Indication: Product used for unknown indication
     Route: 065
  3. FLUVOXAMINE [Suspect]
     Active Substance: FLUVOXAMINE
     Indication: Product used for unknown indication
     Route: 065
  4. LAMOTRIGINE [Suspect]
     Active Substance: LAMOTRIGINE
     Indication: Product used for unknown indication
     Route: 065
  5. BROMAZEPAM [Suspect]
     Active Substance: BROMAZEPAM
     Indication: Drug withdrawal syndrome
     Dosage: X 3 MILLIGRAM IN 1 DAY // 3 MILLIGRAM
     Route: 048
     Dates: start: 202112
  6. BROMAZEPAM [Suspect]
     Active Substance: BROMAZEPAM
     Dosage: X 3 MILLIGRAM IN 1 DAY // 3 MILLIGRAM
     Route: 048
     Dates: start: 202108
  7. LEVOMEPROMAZINE [Suspect]
     Active Substance: LEVOMEPROMAZINE
     Indication: Product used for unknown indication
     Route: 065
  8. LITHIUM [Suspect]
     Active Substance: LITHIUM
     Indication: Product used for unknown indication
     Route: 065
  9. OLANZAPINE [Suspect]
     Active Substance: OLANZAPINE
     Indication: Product used for unknown indication
     Route: 065
  10. PAROXETINE [Suspect]
     Active Substance: PAROXETINE
     Indication: Product used for unknown indication
     Route: 065
  11. PREGABALIN [Suspect]
     Active Substance: PREGABALIN
     Indication: Product used for unknown indication
     Route: 065
  12. PRAZEPAM [Suspect]
     Active Substance: PRAZEPAM
     Dosage: X IN 1 DAY (DOSAGE INFORMATION): DOSE OF 11-30 MG/DAY
     Route: 048
     Dates: start: 20211209
  13. PRAZEPAM [Suspect]
     Active Substance: PRAZEPAM
     Indication: Drug withdrawal syndrome
     Dosage: X IN 1 DAY // (DOSE OF 11-30 MG/DAY)
     Route: 048
     Dates: start: 202203
  14. PRAZEPAM [Suspect]
     Active Substance: PRAZEPAM
     Route: 048
     Dates: start: 20220402
  15. REBOXETINE [Suspect]
     Active Substance: REBOXETINE
     Indication: Product used for unknown indication
     Route: 065
  16. RIVOTRIL [Suspect]
     Active Substance: CLONAZEPAM
     Indication: Drug withdrawal syndrome
     Dosage: 0.5 MG 3X EVERY DAY
     Route: 048
     Dates: start: 20220415, end: 202204
  17. OXAZEPAM [Suspect]
     Active Substance: OXAZEPAM
     Indication: Insomnia
     Dosage: UNK (X 1 DAY) DOSE OF 10 - 15 MG
     Route: 048
     Dates: start: 202102
  18. OXAZEPAM [Suspect]
     Active Substance: OXAZEPAM
     Dosage: UNK (X 1 DAY) DOSE OF 10 - 15 MG
     Route: 048
     Dates: start: 20201211
  19. LORAZEPAM [Suspect]
     Active Substance: LORAZEPAM
     Indication: Drug withdrawal syndrome
     Dosage: X IN 1 DAY (DOSE OF 0.5-2.5 MG 1X/DAY)
     Route: 048
     Dates: start: 20210806
  20. LORAZEPAM [Suspect]
     Active Substance: LORAZEPAM
     Dosage: X IN 1 DAY (DOSE OF 0.5-2.5 MG 1X/DAY)
     Route: 048
     Dates: start: 20210209
  21. VALIUM [Suspect]
     Active Substance: DIAZEPAM
     Indication: Drug withdrawal syndrome
     Dosage: 7.5-25 MG EVERY DAY
     Route: 048
     Dates: start: 20220402
  22. VALPROATE [Suspect]
     Active Substance: VALPROIC ACID
     Indication: Product used for unknown indication
     Route: 065
  23. XANAX [Suspect]
     Active Substance: ALPRAZOLAM
     Indication: Drug withdrawal syndrome
     Dosage: X 0.5 MILLIGRAM IN // 1 GRAM (DOSAGE INFORMATION: 0.5 MG 2X EVER DAY)
     Route: 048
     Dates: start: 20210816, end: 202108

REACTIONS (1)
  - Anxiety [Not Recovered/Not Resolved]
